FAERS Safety Report 9719914 (Version 1)
Quarter: 2013Q4

REPORT INFORMATION
  Report Type: Spontaneous
  Country: GB (occurrence: GB)
  Receive Date: 20131128
  Receipt Date: 20131128
  Transmission Date: 20140711
  Serious: Yes (Hospitalization, Other)
  Sender: FDA-Public Use
  Company Number: GB-JNJFOC-20131116418

PATIENT
  Sex: Female

DRUGS (1)
  1. XARELTO [Suspect]
     Indication: HYPERCOAGULATION
     Route: 048

REACTIONS (1)
  - Pulmonary embolism [Unknown]
